FAERS Safety Report 7013512-1 (Version None)
Quarter: 2010Q3

REPORT INFORMATION
  Report Type: 
  Country: None (occurrence: None)
  Receive Date: 20100924
  Receipt Date: 20100915
  Transmission Date: 20110219
  Serious: Yes (Hospitalization, Other)
  Sender: FDA-Public Use
  Company Number: BR-ABBOTT-10P-020-0665785-00

PATIENT
  Sex: Male

DRUGS (11)
  1. HUMIRA [Suspect]
     Indication: CROHN'S DISEASE
     Dosage: INDUCTION DOSE: 160MG
     Dates: start: 20100712, end: 20100712
  2. HUMIRA [Suspect]
     Dosage: INDUCTION DOSE: 80 MG
     Dates: start: 20100722, end: 20100722
  3. PREDNISONE TAB [Suspect]
     Indication: FISTULA
     Dates: start: 20100731, end: 20100806
  4. PREDNISONE TAB [Suspect]
     Dates: start: 20100807
  5. PREDNISONE TAB [Suspect]
  6. IMURAN [Concomitant]
     Indication: CROHN'S DISEASE
  7. PENTASA [Concomitant]
     Indication: CROHN'S DISEASE
  8. CIPROFLOXACIN [Concomitant]
     Indication: DIARRHOEA
  9. CIPROFLOXACIN [Concomitant]
     Indication: CATHETER PLACEMENT
  10. FLAGYL [Concomitant]
     Indication: DIARRHOEA
  11. FLAGYL [Concomitant]
     Indication: CATHETER PLACEMENT

REACTIONS (6)
  - CYTOMEGALOVIRUS INFECTION [None]
  - DIARRHOEA [None]
  - HAEMATOCHEZIA [None]
  - IMMUNODEFICIENCY [None]
  - PYREXIA [None]
  - RECTAL LESION [None]
